FAERS Safety Report 18618768 (Version 2)
Quarter: 2022Q3

REPORT INFORMATION
  Report Type: Spontaneous
  Country: JP (occurrence: JP)
  Receive Date: 20201215
  Receipt Date: 20220902
  Transmission Date: 20221026
  Serious: Yes (Life-Threatening, Other)
  Sender: FDA-Public Use
  Company Number: JP-ACTELION-A-CH2019-195952

PATIENT
  Age: 24 Year
  Sex: Female
  Weight: 51 kg

DRUGS (41)
  1. OPSUMIT [Suspect]
     Active Substance: MACITENTAN
     Indication: Pulmonary arterial hypertension
     Dosage: 5 MG, BID
     Route: 048
     Dates: start: 20190327
  2. OPSUMIT [Suspect]
     Active Substance: MACITENTAN
     Indication: Pulmonary arterial hypertension
     Dosage: 5 MG, QD
     Route: 048
     Dates: start: 20190326
  3. OPSUMIT [Suspect]
     Active Substance: MACITENTAN
     Dosage: UNK
     Route: 048
  4. EPOPROSTENOL [Suspect]
     Active Substance: EPOPROSTENOL
     Indication: Pulmonary arterial hypertension
     Dosage: 4.4 NG/KG, PER MIN
     Route: 042
  5. EPOPROSTENOL [Suspect]
     Active Substance: EPOPROSTENOL
     Indication: Pulmonary arterial hypertension
     Dosage: 3.9 NG/KG, PER MIN
     Route: 042
     Dates: start: 20190323
  6. EPOPROSTENOL [Suspect]
     Active Substance: EPOPROSTENOL
     Dosage: 5.25 NG/KG, PER MIN
     Route: 042
     Dates: end: 20190419
  7. EPOPROSTENOL [Suspect]
     Active Substance: EPOPROSTENOL
     Dosage: UNK
     Route: 042
     Dates: end: 20190419
  8. UPTRAVI [Suspect]
     Active Substance: SELEXIPAG
     Indication: Pulmonary arterial hypertension
     Dosage: 0.2 MG, BID
     Route: 048
     Dates: start: 20190417, end: 20200702
  9. UPTRAVI [Suspect]
     Active Substance: SELEXIPAG
     Indication: Pulmonary arterial hypertension
     Route: 048
     Dates: start: 20200703
  10. ADCIRCA [Suspect]
     Active Substance: TADALAFIL
     Indication: Pulmonary arterial hypertension
     Dosage: 2.5-40 MG BID
     Route: 048
     Dates: start: 20190319
  11. ADCIRCA [Suspect]
     Active Substance: TADALAFIL
     Indication: Pulmonary arterial hypertension
     Dosage: UNK
     Route: 048
  12. EDOXABAN TOSYLATE [Suspect]
     Active Substance: EDOXABAN TOSYLATE
     Indication: Jugular vein thrombosis
     Dosage: 30 MG, QD
     Route: 048
     Dates: start: 20190418, end: 20190507
  13. SPIRONOLACTONE [Suspect]
     Active Substance: SPIRONOLACTONE
     Indication: Cardiac failure
     Dosage: 25 MG, QD
     Route: 048
     Dates: start: 20190327, end: 20190507
  14. SPIRONOLACTONE [Suspect]
     Active Substance: SPIRONOLACTONE
     Route: 048
     Dates: end: 20190507
  15. AZOSEMIDE [Suspect]
     Active Substance: AZOSEMIDE
     Indication: Cardiac failure
     Dosage: 15-30 MG QD
     Route: 048
     Dates: start: 20190403, end: 20190426
  16. AZOSEMIDE [Suspect]
     Active Substance: AZOSEMIDE
     Dosage: 15 MG, QD
     Route: 048
     Dates: start: 20190507, end: 20200130
  17. FEBUXOSTAT [Suspect]
     Active Substance: FEBUXOSTAT
     Indication: Hyperuricaemia
     Dosage: 10 MG, QD
     Route: 048
     Dates: start: 20190424, end: 20190428
  18. DOPAMINE [Concomitant]
     Active Substance: DOPAMINE HYDROCHLORIDE
  19. DOBUTAMINE [Concomitant]
     Active Substance: DOBUTAMINE HYDROCHLORIDE
  20. MIRTAZAPINE [Concomitant]
     Active Substance: MIRTAZAPINE
  21. FUROSEMIDE [Concomitant]
     Active Substance: FUROSEMIDE
  22. NITRIC OXIDE [Concomitant]
     Active Substance: NITRIC OXIDE
  23. LANSOPRAZOLE [Concomitant]
     Active Substance: LANSOPRAZOLE
     Dosage: 15 MG, QD
     Dates: end: 20190507
  24. CARBOCYSTEINE [Concomitant]
     Active Substance: CARBOCYSTEINE
     Indication: Bronchitis
     Dosage: 1500 MG, QD
     Dates: end: 20190425
  25. DEXTROMETHORPHAN HYDROBROMIDE [Concomitant]
     Active Substance: DEXTROMETHORPHAN HYDROBROMIDE
     Indication: Bronchitis
     Dosage: 45 MG, QD
     Dates: end: 20190425
  26. POTASSIUM CHLORIDE [Concomitant]
     Active Substance: POTASSIUM CHLORIDE
     Indication: Hypokalaemia
     Dosage: 1200 MG, QD
     Dates: start: 20190507
  27. SODIUM FERROUS CITRATE [Concomitant]
     Active Substance: SODIUM FERROUS CITRATE
     Indication: Anaemia
     Dosage: 100 MG, QD
     Dates: start: 20190703
  28. MILRINONE [Concomitant]
     Active Substance: MILRINONE
  29. DOPAMINE HYDROCHLORIDE [Concomitant]
     Active Substance: DOPAMINE HYDROCHLORIDE
  30. HEPARIN [Concomitant]
     Active Substance: HEPARIN SODIUM
  31. FESIN [Concomitant]
  32. REMIFENTANIL [Concomitant]
     Active Substance: REMIFENTANIL
  33. FENTANYL [Concomitant]
     Active Substance: FENTANYL
  34. OXYTOCIN [Concomitant]
     Active Substance: OXYTOCIN
  35. NOREPINEPHRINE [Concomitant]
     Active Substance: NOREPINEPHRINE
  36. AMPICILLIN [Concomitant]
     Active Substance: AMPICILLIN
  37. GENTAMICIN SULFATE [Concomitant]
     Active Substance: GENTAMICIN SULFATE
  38. PRECEDEX [Concomitant]
     Active Substance: DEXMEDETOMIDINE HYDROCHLORIDE
  39. CEFAZOLIN SODIUM [Concomitant]
     Active Substance: CEFAZOLIN SODIUM
  40. TADALAFIL [Concomitant]
     Active Substance: TADALAFIL
  41. DOBUTAMINE HYDROCHLORIDE [Concomitant]
     Active Substance: DOBUTAMINE HYDROCHLORIDE

REACTIONS (14)
  - Oxygen saturation decreased [Recovering/Resolving]
  - Platelet count decreased [Recovering/Resolving]
  - Condition aggravated [Recovering/Resolving]
  - Platelet transfusion [Unknown]
  - Headache [Recovering/Resolving]
  - Diarrhoea [Recovering/Resolving]
  - Liver disorder [Recovered/Resolved]
  - Alanine aminotransferase increased [Recovered/Resolved]
  - Aspartate aminotransferase increased [Recovered/Resolved]
  - Gamma-glutamyltransferase [Recovered/Resolved]
  - Pulmonary oedema [Recovering/Resolving]
  - Palpitations [Recovered/Resolved]
  - Chest pain [Recovered/Resolved]
  - Platelet count decreased [Recovering/Resolving]

NARRATIVE: CASE EVENT DATE: 20190328
